FAERS Safety Report 13503300 (Version 3)
Quarter: 2018Q2

REPORT INFORMATION
  Report Type: Spontaneous
  Country: US (occurrence: US)
  Receive Date: 20170502
  Receipt Date: 20180420
  Transmission Date: 20180711
  Serious: Yes (Hospitalization)
  Sender: FDA-Public Use
  Company Number: US-PFIZER INC-2017191505

PATIENT
  Age: 54 Year
  Sex: Female
  Weight: 85.26 kg

DRUGS (6)
  1. IBRANCE [Suspect]
     Active Substance: PALBOCICLIB
     Dosage: 120 MG, UNK
  2. FASLODEX [Concomitant]
     Active Substance: FULVESTRANT
     Indication: BONE DISORDER
     Dosage: 500 MG, MONTHLY
  3. IBRANCE [Suspect]
     Active Substance: PALBOCICLIB
     Dosage: 100 MG, CYCLIC (21 DAYS ON 7 DAYS OFF)ONCE PER DAY
     Route: 048
     Dates: start: 2017
  4. IBRANCE [Suspect]
     Active Substance: PALBOCICLIB
     Indication: BREAST CANCER METASTATIC
     Dosage: 125 MG, 1X/DAY, AT NIGHT
     Route: 048
     Dates: start: 20170327
  5. MOTRIN [Concomitant]
     Active Substance: IBUPROFEN
     Indication: PAIN
     Dosage: 200 MG, WEEKLY
  6. COMETA [Concomitant]
     Indication: BONE DISORDER
     Dosage: EVERY 3 MONTHS, THROUGH A PORT FOR 30 MINUTES
     Dates: start: 2009

REACTIONS (3)
  - Pyrexia [Recovered/Resolved]
  - Lung disorder [Recovered/Resolved]
  - White blood cell count decreased [Recovering/Resolving]

NARRATIVE: CASE EVENT DATE: 201704
